FAERS Safety Report 5673128-6 (Version None)
Quarter: 2008Q2

REPORT INFORMATION
  Report Type: 
  Country: None (occurrence: None)
  Receive Date: 20080219
  Receipt Date: 20080111
  Transmission Date: 20081010
  Serious: No
  Sender: FDA-Public Use
  Company Number: TPA2007A02494

PATIENT
  Age: 64 Year
  Sex: Male
  Weight: 91.6266 kg

DRUGS (3)
  1. ROZEREM [Suspect]
     Indication: INSOMNIA
     Dosage: 8 MG, QHS, PER ORAL ; 8 MG, QHS, PER ORAL
     Route: 048
     Dates: start: 20071023, end: 20071201
  2. ROZEREM [Suspect]
     Indication: INSOMNIA
     Dosage: 8 MG, QHS, PER ORAL ; 8 MG, QHS, PER ORAL
     Route: 048
     Dates: start: 20071204, end: 20071205
  3. DOXAZOSIN (DOXAZOSIN) [Concomitant]

REACTIONS (4)
  - INITIAL INSOMNIA [None]
  - PARADOXICAL DRUG REACTION [None]
  - PRURITUS [None]
  - TENSION [None]
